FAERS Safety Report 5166241-3 (Version None)
Quarter: 2006Q4

REPORT INFORMATION
  Report Type: 
  Country: None (occurrence: None)
  Receive Date: 20060830
  Receipt Date: 20060602
  Transmission Date: 20070319
  Serious: No
  Sender: FDA-Public Use
  Company Number: 225905

PATIENT
  Age: 51 Year
  Sex: Female
  Weight: 68.5 kg

DRUGS (5)
  1. XOLAIR [Suspect]
     Indication: ASTHMA
     Dosage: 375 MG; Q2W, SUBCUTANEOUS
     Route: 058
     Dates: start: 20050926
  2. ZYFLO [Concomitant]
  3. SINGULAIR [Concomitant]
  4. ALBUTEROL (ALBUTEROL/ALBUTEROL SULFATE) [Concomitant]
  5. ADVAIR (FLUTICASONE PROPIONATE, SALMETEROL SINAFOATE) [Concomitant]

REACTIONS (5)
  - HYPERHIDROSIS [None]
  - INSOMNIA [None]
  - NAUSEA [None]
  - TREMOR [None]
  - VISION BLURRED [None]
